FAERS Safety Report 14334739 (Version 1)
Quarter: 2017Q4

REPORT INFORMATION
  Report Type: Spontaneous
  Country: FR (occurrence: FR)
  Receive Date: 20171228
  Receipt Date: 20171228
  Transmission Date: 20180321
  Serious: Yes (Hospitalization)
  Sender: FDA-Public Use
  Company Number: FR-CONCORDIA PHARMACEUTICALS INC.-E2B_00009144

PATIENT
  Age: 85 Year
  Sex: Female
  Weight: 46 kg

DRUGS (2)
  1. HEXABRIX [Suspect]
     Active Substance: IOXAGLATE MEGLUMINE\IOXAGLATE SODIUM
     Indication: BACK PAIN
     Route: 024
     Dates: start: 20171009
  2. PREDNISOLONE. [Suspect]
     Active Substance: PREDNISOLONE
     Indication: BACK PAIN
     Dosage: ; IN TOTAL
     Route: 024
     Dates: start: 20171009

REACTIONS (3)
  - Neck pain [Recovered/Resolved]
  - Sepsis [Recovered/Resolved]
  - Intervertebral discitis [Recovering/Resolving]

NARRATIVE: CASE EVENT DATE: 20171010
